FAERS Safety Report 4401006-9 (Version None)
Quarter: 2004Q3

REPORT INFORMATION
  Report Type: 
  Country: None (occurrence: None)
  Receive Date: 20040907
  Receipt Date: 20030916
  Transmission Date: 20050211
  Serious: No
  Sender: FDA-Public Use
  Company Number: US-BRISTOL-MYERS SQUIBB COMPANY-12385787

PATIENT
  Age: 56 Year
  Sex: Male

DRUGS (4)
  1. COUMADIN [Suspect]
     Indication: ATRIAL FIBRILLATION
     Dosage: DOSAGE: 10MG MONDAY TO FRIDAY, 7.5MG SATURDAY + SUNDAY
     Route: 048
  2. ATENOLOL [Concomitant]
  3. VIAGRA [Concomitant]
  4. HERBAL PREPARATION [Concomitant]

REACTIONS (1)
  - INTERNATIONAL NORMALISED RATIO DECREASED [None]
